FAERS Safety Report 7468549-5 (Version None)
Quarter: 2011Q2

REPORT INFORMATION
  Report Type: 
  Country: None (occurrence: None)
  Receive Date: 20110509
  Receipt Date: 20110502
  Transmission Date: 20111010
  Serious: Yes (Death)
  Sender: FDA-Public Use
  Company Number: US-BAYER-201036720NA

PATIENT
  Age: 54 Year
  Sex: Male
  Weight: 121.9 kg

DRUGS (33)
  1. PROHANCE [Suspect]
     Indication: NUCLEAR MAGNETIC RESONANCE IMAGING
  2. LANTUS [Concomitant]
  3. PREDNISONE TAB [Concomitant]
     Dosage: UNK
     Dates: end: 20040201
  4. CELL CEPT [Concomitant]
  5. ACTOS [Concomitant]
  6. ZAROXOLYN [Concomitant]
  7. OMNISCAN [Suspect]
     Indication: ANGIOGRAM
     Dosage: 27 ML, ONCE
     Route: 042
     Dates: start: 20060519, end: 20060519
  8. SPIRONOLACTONE [Concomitant]
  9. CALCIJEX [Concomitant]
  10. VENOFER [Concomitant]
  11. OPTIMARK [Suspect]
     Indication: NUCLEAR MAGNETIC RESONANCE IMAGING
  12. WARFARIN [Concomitant]
  13. ARANESP [Concomitant]
  14. SIROLIMUS [Concomitant]
  15. PHOSLO [Concomitant]
  16. VASOTEC [ENALAPRILAT] [Concomitant]
  17. METOPROLOL TARTRATE [Concomitant]
  18. RAPAMUNE [Concomitant]
  19. OXYCODONE [Concomitant]
  20. NEPHROCAPS [FOLIC ACID,VITAMINS NOS] [Concomitant]
  21. NEURONTIN [Concomitant]
  22. RENAGEL [Concomitant]
  23. DIGOXIN [Concomitant]
  24. ZEMPLAR [Concomitant]
  25. MAGNEVIST [Suspect]
     Indication: NUCLEAR MAGNETIC RESONANCE IMAGING
  26. UNSPECIFIED GBCA [Suspect]
     Indication: NUCLEAR MAGNETIC RESONANCE IMAGING
     Dosage: 20 ML, ONCE
     Dates: start: 19980103, end: 19980103
  27. MULTIHANCE [Suspect]
     Indication: NUCLEAR MAGNETIC RESONANCE IMAGING
  28. PERCOCET [Concomitant]
  29. AMLODIPINE BESYLATE [Concomitant]
  30. NORVASC [Concomitant]
     Dosage: UNK
     Dates: end: 20040201
  31. EPOGEN [Concomitant]
  32. HUMALOG [Concomitant]
  33. LASIX [Concomitant]
     Dosage: UNK
     Dates: end: 20040201

REACTIONS (20)
  - SCAR [None]
  - SKIN HYPERTROPHY [None]
  - SKIN INDURATION [None]
  - MUSCULAR WEAKNESS [None]
  - OEDEMA PERIPHERAL [None]
  - MUSCULOSKELETAL STIFFNESS [None]
  - PRURITUS [None]
  - JOINT STIFFNESS [None]
  - ERYTHEMA [None]
  - NEPHROGENIC SYSTEMIC FIBROSIS [None]
  - SKIN IRRITATION [None]
  - SKIN DISCOLOURATION [None]
  - PAIN [None]
  - GENERAL PHYSICAL HEALTH DETERIORATION [None]
  - DEFORMITY [None]
  - MOBILITY DECREASED [None]
  - DRY SKIN [None]
  - DISCOMFORT [None]
  - SKIN FISSURES [None]
  - JOINT RANGE OF MOTION DECREASED [None]
